FAERS Safety Report 13584073 (Version 1)
Quarter: 2017Q2

REPORT INFORMATION
  Report Type: Spontaneous
  Country: None (occurrence: US)
  Receive Date: 20170525
  Receipt Date: 20170525
  Transmission Date: 20170830
  Serious: Yes (Hospitalization)
  Sender: FDA-Public Use
  Company Number: None

PATIENT
  Age: 66 Year
  Sex: Male
  Weight: 131 kg

DRUGS (2)
  1. PEMETREXED. [Suspect]
     Active Substance: PEMETREXED
     Indication: LUNG NEOPLASM MALIGNANT
     Dosage: 1300 MG OTHER IV
     Route: 042
     Dates: start: 20170216, end: 20170321
  2. CARBOPLATIN. [Suspect]
     Active Substance: CARBOPLATIN
     Dosage: 600 MG OTHER IV
     Route: 042
     Dates: start: 20170216, end: 20170321

REACTIONS (12)
  - Rash [None]
  - Blood creatinine increased [None]
  - Anaemia [None]
  - Hypotension [None]
  - Hypomagnesaemia [None]
  - Pancytopenia [None]
  - Acute kidney injury [None]
  - Fatigue [None]
  - Dizziness [None]
  - Haemorrhage [None]
  - Blood glucose increased [None]
  - Hypokalaemia [None]

NARRATIVE: CASE EVENT DATE: 20170320
